FAERS Safety Report 4985887-6 (Version None)
Quarter: 2006Q2

REPORT INFORMATION
  Report Type: 
  Country: None (occurrence: None)
  Receive Date: 20060421
  Receipt Date: 20060413
  Transmission Date: 20061013
  Serious: Yes (Disabling)
  Sender: FDA-Public Use
  Company Number: GBWYE517529MAR06

PATIENT
  Age: 72 Year
  Sex: Female

DRUGS (4)
  1. EFFEXOR XR [Suspect]
     Dosage: 75 MG
     Route: 048
     Dates: start: 20020610, end: 20020614
  2. REGULAN     (PSYLLIUM HYDROPHILIC MUCILLOID) [Concomitant]
  3. ASPIRIN [Concomitant]
  4. RAMIPRIL [Concomitant]

REACTIONS (3)
  - CEREBRAL INFARCTION [None]
  - HEMIANOPIA [None]
  - HEMIPARESIS [None]
